FAERS Safety Report 7110292-6 (Version None)
Quarter: 2010Q4

REPORT INFORMATION
  Report Type: 
  Country: None (occurrence: None)
  Receive Date: 20101118
  Receipt Date: 20101108
  Transmission Date: 20110411
  Serious: Yes (Hospitalization)
  Sender: FDA-Public Use
  Company Number: PL-BAXTER-2010BH027789

PATIENT
  Sex: Male

DRUGS (2)
  1. GAMMAGARD LIQUID [Suspect]
     Indication: ACQUIRED IMMUNODEFICIENCY SYNDROME
     Route: 065
  2. GAMMAGARD LIQUID [Suspect]
     Indication: SECONDARY IMMUNODEFICIENCY
     Route: 065

REACTIONS (5)
  - ABDOMINAL PAIN [None]
  - BLOOD PRESSURE DECREASED [None]
  - LOSS OF CONSCIOUSNESS [None]
  - NAUSEA [None]
  - TREMOR [None]
